FAERS Safety Report 16491371 (Version 1)
Quarter: 2019Q3

REPORT INFORMATION
  Report Type: Spontaneous
  Country: US (occurrence: US)
  Receive Date: 20190627
  Receipt Date: 20190627
  Transmission Date: 20191004
  Serious: Yes (Life-Threatening, Hospitalization, Disabling)
  Sender: FDA-Public Use
  Company Number: None

PATIENT
  Age: 5 Day
  Sex: Female
  Weight: 4.95 kg

DRUGS (2)
  1. ERYTHROMYCIN OPTHALMIC OINTMENT USP [Suspect]
     Active Substance: ERYTHROMYCIN
     Indication: EYE DISCHARGE
     Dosage: ?          QUANTITY:1 TUBE;?
     Route: 047
     Dates: start: 20190411, end: 20190413
  2. ENFAMIL ENSPIRE [Concomitant]

REACTIONS (3)
  - Sleep terror [None]
  - Pyloric stenosis [None]
  - Product use complaint [None]

NARRATIVE: CASE EVENT DATE: 20190411
